FAERS Safety Report 23496522 (Version 1)
Quarter: 2024Q1

REPORT INFORMATION
  Report Type: Spontaneous
  Country: US (occurrence: US)
  Receive Date: 20240208
  Receipt Date: 20240208
  Transmission Date: 20240409
  Serious: Yes (Hospitalization, Other)
  Sender: FDA-Public Use
  Company Number: US-AMGEN-USASP2024021089

PATIENT
  Age: 48 Year
  Sex: Female

DRUGS (10)
  1. FILGRASTIM [Suspect]
     Active Substance: FILGRASTIM
     Indication: Leukopenia
     Dosage: UNK
     Route: 065
  2. INFLIXIMAB [Suspect]
     Active Substance: INFLIXIMAB
     Indication: Stevens-Johnson syndrome
     Dosage: UNK
     Route: 065
  3. INFLIXIMAB [Suspect]
     Active Substance: INFLIXIMAB
     Indication: Toxic epidermal necrolysis
  4. INFLIXIMAB [Suspect]
     Active Substance: INFLIXIMAB
     Indication: Off label use
  5. BACTRIM [Concomitant]
     Active Substance: SULFAMETHOXAZOLE\TRIMETHOPRIM
  6. PENTAMIDINE [Concomitant]
     Active Substance: PENTAMIDINE
  7. VANCOMYCIN [Concomitant]
     Active Substance: VANCOMYCIN
  8. LINEZOLID [Concomitant]
     Active Substance: LINEZOLID
  9. TACROLIMUS [Concomitant]
     Active Substance: TACROLIMUS
  10. CYCLOSPORINE [Concomitant]
     Active Substance: CYCLOSPORINE

REACTIONS (3)
  - Abdominal infection [Unknown]
  - Liver transplant rejection [Recovered/Resolved]
  - Off label use [Unknown]
